FAERS Safety Report 11095587 (Version 1)
Quarter: 2015Q2

REPORT INFORMATION
  Report Type: Spontaneous
  Country: GB (occurrence: GB)
  Receive Date: 20150506
  Receipt Date: 20150506
  Transmission Date: 20150821
  Serious: Yes (Other)
  Sender: FDA-Public Use
  Company Number: GB-AMGEN-GBRSP2015043287

PATIENT
  Age: 56 Year
  Sex: Male

DRUGS (1)
  1. ENBREL [Suspect]
     Active Substance: ETANERCEPT
     Indication: PRODUCT USED FOR UNKNOWN INDICATION
     Dosage: 50 MG, UNK
     Route: 065

REACTIONS (11)
  - Diverticulitis [Unknown]
  - Diarrhoea [Unknown]
  - Cold sweat [Unknown]
  - Chills [Unknown]
  - Pyrexia [Unknown]
  - Hypophagia [Unknown]
  - Frequent bowel movements [Unknown]
  - Vomiting [Unknown]
  - Drug ineffective [Unknown]
  - Pain in extremity [Unknown]
  - Abdominal pain [Unknown]
